FAERS Safety Report 9641970 (Version 2)
Quarter: 2013Q4

REPORT INFORMATION
  Report Type: Report from Study
  Country: IT (occurrence: IT)
  Receive Date: 20131023
  Receipt Date: 20131023
  Transmission Date: 20140711
  Serious: Yes (Hospitalization)
  Sender: FDA-Public Use
  Company Number: IT-TAKEDA-TPA2012A08600

PATIENT
  Age: 55 Year
  Sex: Male
  Weight: 69 kg

DRUGS (18)
  1. BLINDED ALLOPURINOL [Suspect]
     Indication: TUMOUR LYSIS SYNDROME
     Route: 048
     Dates: start: 20121004, end: 20121010
  2. BLINDED FEBUXOSTAT [Suspect]
     Indication: TUMOUR LYSIS SYNDROME
     Route: 048
     Dates: start: 20121004, end: 20121010
  3. ALLOPURINOL [Suspect]
     Indication: TUMOUR LYSIS SYNDROME
     Route: 048
     Dates: start: 20121004, end: 20121010
  4. EFFENTORA [Concomitant]
     Indication: MUSCULOSKELETAL PAIN
     Route: 048
     Dates: start: 20121010
  5. OXYCODONE [Concomitant]
     Indication: MUSCULOSKELETAL PAIN
     Dosage: 30 MG, QD
     Dates: start: 20121005
  6. NAVELBINE [Concomitant]
     Indication: CHEMOTHERAPY
     Dosage: UNK
     Dates: start: 20121006, end: 20121009
  7. PANTORC [Concomitant]
     Indication: GASTRITIS PROPHYLAXIS
     Dosage: 20 MG, BID
     Route: 048
     Dates: start: 20120801
  8. LYRICA [Concomitant]
     Indication: MUSCULOSKELETAL PAIN
     Dosage: 150 MG, BID
     Route: 048
     Dates: start: 20120901
  9. CLEXANE [Concomitant]
     Indication: THROMBOSIS PROPHYLAXIS
     Dosage: 4000 IU, QD
     Route: 058
     Dates: start: 20121002
  10. DESAMETASONE                 /00016002/ [Concomitant]
     Indication: MUSCULOSKELETAL PAIN
     Dosage: 20 MG, UNK
     Dates: start: 20121002, end: 20121005
  11. ALBUMINA [Concomitant]
     Indication: HYPOALBUMINAEMIA
     Dosage: 250 ML, BID
     Route: 042
     Dates: start: 20121007, end: 20121019
  12. LASIX [Concomitant]
     Indication: FLUID RETENTION
     Dosage: 20MG.BID
     Route: 042
     Dates: start: 20121006, end: 20121010
  13. ZOFRAN [Concomitant]
     Indication: NAUSEA
     Dosage: 8MG,UNK
     Route: 042
     Dates: start: 20121013, end: 20121013
  14. ANTABUSE [Concomitant]
     Indication: ALCOHOL ABUSE
     Dosage: 200 MG, QD
     Route: 048
     Dates: start: 201009
  15. TWICE [Concomitant]
     Indication: MUSCULOSKELETAL PAIN
     Dosage: 20 MG, BID
     Route: 048
     Dates: start: 20121002, end: 20121004
  16. GEMCITABINE [Concomitant]
     Indication: CHEMOTHERAPY
     Dosage: UNK
     Dates: start: 20121006, end: 20121009
  17. MESNA [Concomitant]
     Indication: CHEMOTHERAPY
     Dosage: UNK
     Dates: start: 20121006, end: 20121009
  18. IFOSFAMIDE [Concomitant]
     Indication: CHEMOTHERAPY
     Dosage: UNK
     Dates: start: 20121006, end: 20121009

REACTIONS (2)
  - Febrile neutropenia [Recovered/Resolved]
  - Platelet count decreased [Recovered/Resolved with Sequelae]
